FAERS Safety Report 8580050-4 (Version None)
Quarter: 2012Q3

REPORT INFORMATION
  Report Type: 
  Country: None (occurrence: None)
  Receive Date: 20120808
  Receipt Date: 20120801
  Transmission Date: 20120928
  Serious: Yes (Hospitalization, Other)
  Sender: FDA-Public Use
  Company Number: KR-ABBOTT-08P-090-0494297-00

PATIENT
  Age: 47 Year
  Sex: Male

DRUGS (7)
  1. ISONICOTINIC ACID HYDRAZIDE [Concomitant]
     Indication: LATENT TUBERCULOSIS
     Dosage: 300 MG DAILY
     Route: 048
     Dates: start: 20081103, end: 20081216
  2. SULFASALAZINE [Concomitant]
     Indication: PROPHYLAXIS
  3. PREDNISOLONE [Concomitant]
     Indication: ANTIINFLAMMATORY THERAPY
     Dosage: 5 MG DAILY
     Route: 048
     Dates: end: 20081216
  4. HUMIRA [Suspect]
     Route: 058
     Dates: start: 20090302
  5. HUMIRA [Suspect]
     Indication: PSORIATIC ARTHROPATHY
     Route: 058
     Dates: start: 20081202, end: 20081218
  6. SULFASALAZINE [Concomitant]
     Indication: RHEUMATOID ARTHRITIS
     Dosage: 2000 MG DAILY
     Route: 048
     Dates: end: 20081216
  7. CELECOXIB [Concomitant]
     Indication: ANTIINFLAMMATORY THERAPY
     Dosage: 200 MG DAILY
     Route: 048

REACTIONS (4)
  - NASOPHARYNGITIS [None]
  - PNEUMONIA [None]
  - DELIRIUM [None]
  - DEMENTIA [None]
